FAERS Safety Report 8191225-0 (Version None)
Quarter: 2012Q1

REPORT INFORMATION
  Report Type: 
  Country: None (occurrence: None)
  Receive Date: 20120221
  Receipt Date: 20120104
  Transmission Date: 20120608
  Serious: Yes (Other)
  Sender: FDA-Public Use
  Company Number: 048872

PATIENT

DRUGS (1)
  1. LACOSAMIDE [Suspect]
     Dosage: UNKNOWN DOSE

REACTIONS (1)
  - MICTURITION FREQUENCY DECREASED [None]
